FAERS Safety Report 20871929 (Version 1)
Quarter: 2022Q2

REPORT INFORMATION
  Report Type: Spontaneous
  Country: US (occurrence: None)
  Receive Date: 20220524
  Receipt Date: 20220524
  Transmission Date: 20220721
  Serious: Yes (Hospitalization)
  Sender: FDA-Public Use
  Company Number: None

PATIENT
  Sex: Female

DRUGS (12)
  1. AMBRISENTAN [Suspect]
     Active Substance: AMBRISENTAN
     Indication: Pulmonary arterial hypertension
     Dosage: FREQUENCY : DAILY;?
     Route: 048
  2. ASPIRIN [Concomitant]
     Active Substance: ASPIRIN
  3. TADALAFIL [Concomitant]
     Active Substance: TADALAFIL
  4. ALENDRONATE [Concomitant]
     Active Substance: ALENDRONATE SODIUM
  5. APPLE CIDER VINEGAR [Concomitant]
     Active Substance: APPLE CIDER VINEGAR
  6. POTASSIUM [Concomitant]
     Active Substance: POTASSIUM
  7. LOSARTAN [Concomitant]
     Active Substance: LOSARTAN
  8. ADVAIR HFA [Concomitant]
     Active Substance: FLUTICASONE PROPIONATE\SALMETEROL XINAFOATE
  9. CVS Airshield [Concomitant]
  10. ALBUTEROL [Concomitant]
     Active Substance: ALBUTEROL
  11. VENTOLIN [Concomitant]
     Active Substance: ALBUTEROL SULFATE
  12. METFORMIN [Concomitant]
     Active Substance: METFORMIN HYDROCHLORIDE

REACTIONS (2)
  - Oxygen saturation decreased [None]
  - Blood potassium increased [None]
